FAERS Safety Report 7271652-6 (Version None)
Quarter: 2011Q1

REPORT INFORMATION
  Report Type: 
  Country: None (occurrence: None)
  Receive Date: 20110203
  Receipt Date: 20110131
  Transmission Date: 20110831
  Serious: No
  Sender: FDA-Public Use
  Company Number: US-JNJFOC-20110200415

PATIENT
  Sex: Male
  Weight: 120.2 kg

DRUGS (6)
  1. DURAGESIC-50 [Suspect]
     Indication: EXOSTOSIS
     Route: 062
  2. DURAGESIC-50 [Suspect]
     Indication: INTERVERTEBRAL DISC DEGENERATION
     Route: 062
  3. PERCOCET [Concomitant]
     Indication: BREAKTHROUGH PAIN
     Dosage: U/AS NEEDED
     Route: 048
  4. ZANAFLEX [Concomitant]
     Indication: MUSCLE RELAXANT THERAPY
     Route: 065
  5. FIORICET [Concomitant]
     Indication: BREAKTHROUGH PAIN
     Route: 048
  6. PROPRANOLOL [Concomitant]
     Indication: BLOOD PRESSURE
     Route: 048

REACTIONS (2)
  - WRONG TECHNIQUE IN DRUG USAGE PROCESS [None]
  - DRUG PRESCRIBING ERROR [None]
